FAERS Safety Report 4422469-9 (Version None)
Quarter: 2004Q3

REPORT INFORMATION
  Report Type: 
  Country: None (occurrence: None)
  Receive Date: 20040810
  Receipt Date: 20020730
  Transmission Date: 20050211
  Serious: Yes (Hospitalization, Other)
  Sender: FDA-Public Use
  Company Number: PHBS2002GB09110

PATIENT
  Age: 31 Year
  Sex: Female

DRUGS (4)
  1. RIFAMPICIN [Suspect]
     Indication: TUBERCULOID LEPROSY
     Dosage: 600 MG, QMO
     Route: 065
     Dates: start: 20000101
  2. DAPSONE [Suspect]
     Indication: TUBERCULOID LEPROSY
     Dosage: 100 MG/D
     Route: 065
     Dates: start: 20000101
  3. CYCLOSPORINE [Suspect]
     Dosage: 100 MG/D
     Route: 065
  4. PREDNISOLONE [Suspect]
     Dosage: 40 MG/D
     Route: 065

REACTIONS (15)
  - ABDOMINAL PAIN [None]
  - ABSCESS [None]
  - ANAEMIA [None]
  - ANURIA [None]
  - BLOOD CREATININE INCREASED [None]
  - DIARRHOEA [None]
  - DUODENAL ULCER PERFORATION [None]
  - HAEMOGLOBIN DECREASED [None]
  - HAEMOLYSIS [None]
  - JAUNDICE [None]
  - LAPAROTOMY [None]
  - PYREXIA [None]
  - RENAL FAILURE ACUTE [None]
  - RETICULOCYTE COUNT INCREASED [None]
  - VOMITING [None]
